FAERS Safety Report 13176159 (Version 7)
Quarter: 2018Q4

REPORT INFORMATION
  Report Type: Report from Study
  Country: JP (occurrence: JP)
  Receive Date: 20170201
  Receipt Date: 20181105
  Transmission Date: 20190204
  Serious: Yes (Hospitalization)
  Sender: FDA-Public Use
  Company Number: JP-PFIZER INC-2016461348

PATIENT
  Age: 69 Year
  Sex: Male
  Weight: 56 kg

DRUGS (6)
  1. RHEUMATREX [Concomitant]
     Active Substance: METHOTREXATE SODIUM
     Dosage: 8 MG, WEEKLY
     Route: 048
     Dates: start: 20160531, end: 20160620
  2. XELJANZ [Suspect]
     Active Substance: TOFACITINIB CITRATE
     Indication: RHEUMATOID ARTHRITIS
     Dosage: 5 MG, 1X/DAY
     Route: 048
     Dates: start: 20160628, end: 20160726
  3. PREDNISOLONE. [Concomitant]
     Active Substance: PREDNISOLONE
     Dosage: 10 MG, DAILY
     Route: 048
     Dates: start: 20160628, end: 20160711
  4. ISCOTIN [Concomitant]
     Active Substance: ISONIAZID
     Indication: ANTIBIOTIC PROPHYLAXIS
     Dosage: UNK
     Dates: start: 20160531
  5. RHEUMATREX [Concomitant]
     Active Substance: METHOTREXATE SODIUM
     Dosage: 10 MG, WEEKLY
     Route: 048
     Dates: start: 20160628, end: 20160726
  6. PREDNISOLONE. [Concomitant]
     Active Substance: PREDNISOLONE
     Dosage: 7.5 MG, DAILY
     Route: 048
     Dates: start: 20160712, end: 20160726

REACTIONS (1)
  - Interstitial lung disease [Recovering/Resolving]

NARRATIVE: CASE EVENT DATE: 20160724
